FAERS Safety Report 6739960-2 (Version None)
Quarter: 2010Q2

REPORT INFORMATION
  Report Type: 
  Country: None (occurrence: None)
  Receive Date: 20100525
  Receipt Date: 20100520
  Transmission Date: 20101027
  Serious: Yes (Hospitalization)
  Sender: FDA-Public Use
  Company Number: FR-BRISTOL-MYERS SQUIBB COMPANY-15086317

PATIENT
  Age: 28 Year
  Sex: Female
  Weight: 62 kg

DRUGS (2)
  1. ABILIFY [Suspect]
     Indication: SCHIZOPHRENIA
     Dosage: INITIALLY 10MG/D DOSE REDUCED TO 10 MG/D AND THEN DISCONTINUED  RESTARTED ON 25APR10
     Dates: start: 20090701
  2. TERCIAN [Concomitant]

REACTIONS (1)
  - DELUSION [None]
